FAERS Safety Report 20923856 (Version 13)
Quarter: 2023Q4

REPORT INFORMATION
  Report Type: Report from Study
  Country: GB (occurrence: None)
  Receive Date: 20220607
  Receipt Date: 20231006
  Transmission Date: 20240110
  Serious: Yes (Other)
  Sender: FDA-Public Use
  Company Number: GB-002147023-NVSC2022GB119332

PATIENT
  Age: 52 Year
  Sex: Female

DRUGS (25)
  1. METHOTREXATE [Suspect]
     Active Substance: METHOTREXATE
     Indication: Product used for unknown indication
  2. METHOTREXATE [Suspect]
     Active Substance: METHOTREXATE
  3. METHOTREXATE [Suspect]
     Active Substance: METHOTREXATE
  4. METHOTREXATE [Suspect]
     Active Substance: METHOTREXATE
  5. COSENTYX [Suspect]
     Active Substance: SECUKINUMAB
     Indication: Psoriatic arthropathy
  6. COSENTYX [Suspect]
     Active Substance: SECUKINUMAB
     Dosage: (2 PRE-FILLED DISPOSABLE INJECTION)
  7. COSENTYX [Suspect]
     Active Substance: SECUKINUMAB
     Dosage: (2 PRE-FILLED DISPOSABLE INJECTION)
  8. COSENTYX [Suspect]
     Active Substance: SECUKINUMAB
     Dosage: (2 PRE-FILLED DISPOSABLE INJECTION)
  9. COSENTYX [Suspect]
     Active Substance: SECUKINUMAB
     Dosage: SENSO READY PEN, (WEEK 0, 1, 2, 3, 4) (2 PRE-FILLED DISPOSABLE INJECTION)
     Dates: start: 20190608
  10. COSENTYX [Suspect]
     Active Substance: SECUKINUMAB
  11. COSENTYX [Suspect]
     Active Substance: SECUKINUMAB
  12. COSENTYX [Suspect]
     Active Substance: SECUKINUMAB
     Dosage: (2 PRE-FILLED DISPOSABLE INJECTION)
  13. COSENTYX [Suspect]
     Active Substance: SECUKINUMAB
     Dosage: (2 PRE-FILLED DISPOSABLE INJECTION)
  14. COSENTYX [Suspect]
     Active Substance: SECUKINUMAB
     Dosage: (2 PRE-FILLED DISPOSABLE INJECTION)
  15. COSENTYX [Suspect]
     Active Substance: SECUKINUMAB
     Dosage: (2 PRE-FILLED DISPOSABLE INJECTION)
  16. COSENTYX [Suspect]
     Active Substance: SECUKINUMAB
  17. COSENTYX [Suspect]
     Active Substance: SECUKINUMAB
  18. COSENTYX [Suspect]
     Active Substance: SECUKINUMAB
  19. COSENTYX [Suspect]
     Active Substance: SECUKINUMAB
     Dosage: (2 PRE-FILLED DISPOSABLE INJECTION)
  20. COSENTYX [Suspect]
     Active Substance: SECUKINUMAB
  21. COSENTYX [Suspect]
     Active Substance: SECUKINUMAB
  22. COSENTYX [Suspect]
     Active Substance: SECUKINUMAB
     Dosage: (2 PRE-FILLED DISPOSABLE INJECTION)
  23. COSENTYX [Suspect]
     Active Substance: SECUKINUMAB
  24. COSENTYX [Suspect]
     Active Substance: SECUKINUMAB
  25. COSENTYX [Suspect]
     Active Substance: SECUKINUMAB
     Dates: start: 20190608

REACTIONS (19)
  - Liver injury [Unknown]
  - Psoriatic arthropathy [Not Recovered/Not Resolved]
  - Mental impairment [Not Recovered/Not Resolved]
  - Memory impairment [Not Recovered/Not Resolved]
  - Product dose omission issue [Unknown]
  - Inappropriate schedule of product administration [Not Recovered/Not Resolved]
  - Product availability issue [Unknown]
  - Fibromyalgia [Unknown]
  - Eye disorder [Unknown]
  - Ear pain [Unknown]
  - Illness [Unknown]
  - Headache [Unknown]
  - Decreased appetite [Not Recovered/Not Resolved]
  - Depressed mood [Not Recovered/Not Resolved]
  - Tearfulness [Not Recovered/Not Resolved]
  - Stress [Not Recovered/Not Resolved]
  - Malaise [Unknown]
  - Pain [Not Recovered/Not Resolved]
  - Anxiety [Unknown]
